FAERS Safety Report 9114030 (Version 1)
Quarter: 2013Q1

REPORT INFORMATION
  Report Type: Report from Study
  Country: US (occurrence: US)
  Receive Date: 20130208
  Receipt Date: 20130208
  Transmission Date: 20140127
  Serious: Yes (Hospitalization)
  Sender: FDA-Public Use
  Company Number: US-PFIZER INC-2013047443

PATIENT
  Age: 78 Year
  Sex: Male

DRUGS (25)
  1. PRISTIQ [Suspect]
     Dosage: UNK
     Route: 048
     Dates: start: 20121012, end: 20121015
  2. CITALOPRAM [Suspect]
     Indication: DEPRESSION
     Dosage: 20 MG, 1 IN 1 D
     Route: 048
     Dates: start: 20120827
  3. BLINDED THERAPY [Suspect]
     Indication: PROSTATE CANCER
     Dosage: 160 MG, ONCE DAILY, 1 IN 1 D
     Route: 048
     Dates: start: 20120911, end: 20121024
  4. BLINDED THERAPY [Suspect]
     Dosage: 160 MG, ONCE DAILY, 1 IN 1 D
     Route: 048
     Dates: start: 20121109
  5. AMBIEN [Concomitant]
     Indication: INSOMNIA
     Dosage: 5 MG
     Route: 048
     Dates: start: 2010
  6. AMBIEN [Concomitant]
     Dosage: 10 MG, 1 IN 1 D
     Route: 048
     Dates: start: 2011
  7. ASTEPRO [Concomitant]
     Indication: HYPERSENSITIVITY
     Dosage: 205.5 UG, 1 IN 1 D
     Route: 048
     Dates: start: 201202
  8. ASTEPRO [Concomitant]
     Indication: ASTHMA
  9. FLUTICASONE PROPIONATE [Concomitant]
     Indication: ASTHMA
     Dosage: 50 UG, 1 SPRAY EACH NOSTRIL, ROUTE: INHALATION
     Route: 055
  10. TAMSULOSIN [Concomitant]
     Indication: URINE FLOW DECREASED
     Dosage: 4 MG, 1 IN 1 D
     Route: 048
     Dates: start: 2009
  11. VESICARE [Concomitant]
     Indication: NOCTURIA
     Dosage: 5 MG, 1 IN 1 D
     Route: 048
     Dates: start: 201202
  12. BETAMETHASONE DIPROPIONATE [Concomitant]
     Indication: ECZEMA
     Dosage: 0.05 %, AS REQUIRED
     Route: 061
     Dates: start: 2010
  13. ACETYLSALICYLIC ACID [Concomitant]
     Indication: CARDIOVASCULAR EVENT PROPHYLAXIS
     Dosage: 81 MG, 1 IN 1 D
     Route: 048
     Dates: start: 2011
  14. VITAMIN D3 [Concomitant]
     Indication: SUPPLEMENTATION THERAPY
     Dosage: 1000 IU, 1 IN 1 D
     Route: 048
     Dates: start: 2011
  15. CALCIUM D3 [Concomitant]
     Indication: SUPPLEMENTATION THERAPY
     Dosage: CALCIUM 600 MG + D3 400 IU, (1 IN 1 D)
     Route: 048
     Dates: start: 2011
  16. FEXOFENADINE HYDROCHLORIDE [Concomitant]
     Indication: HYPERSENSITIVITY
     Dosage: 180 MG, 1 IN 1 D
     Route: 048
     Dates: start: 2011
  17. FEXOFENADINE HYDROCHLORIDE [Concomitant]
     Indication: ASTHMA
  18. FLAXSEED OIL [Concomitant]
     Indication: SUPPLEMENTATION THERAPY
     Dosage: 1300 MG, 1 IN 1 D
     Route: 048
     Dates: start: 2011
  19. LUTEIN/ZEAXANTHING [Concomitant]
     Indication: SUPPLEMENTATION THERAPY
     Dosage: LUTEIN 25 MG, ZEAXANTHIN 5 MG, 1 IN 1 D
     Route: 048
     Dates: start: 2011
  20. ACETAMINOPHEN [Concomitant]
     Indication: BACK PAIN
     Dosage: 650 MG, AS REQUIRED
     Route: 048
     Dates: start: 201209, end: 20121006
  21. HYDROCODONE/ACETAMINOPHEN [Concomitant]
     Indication: BACK PAIN
     Dosage: 5/500 MG AS REQUIRED
     Route: 048
     Dates: start: 20121006
  22. DENOSUMAB [Concomitant]
     Indication: OSTEOPOROSIS PROPHYLAXIS
     Dosage: 0.3333 MG (60 MG, 1 IN 6 M)
     Route: 058
     Dates: start: 20120911
  23. CLOBETASOL PROPIONATE [Concomitant]
     Indication: ECZEMA
     Dosage: 0.0036 % (0.05%, 1 IN 2 WK)
     Route: 061
     Dates: start: 2011
  24. DIGESTIVE ENZYMES [Concomitant]
     Indication: SUPPLEMENTATION THERAPY
     Dosage: 1 IN 1 D
     Route: 048
     Dates: start: 2011
  25. METHOCARBAMOL [Concomitant]
     Indication: BACK PAIN
     Dosage: 500 MG, AS REQUIRED
     Route: 048
     Dates: start: 20121006

REACTIONS (2)
  - Inappropriate antidiuretic hormone secretion [Recovered/Resolved]
  - Duodenal ulcer [Recovered/Resolved]
